FAERS Safety Report 25723737 (Version 9)
Quarter: 2025Q4

REPORT INFORMATION
  Report Type: Report from Study
  Country: ZA (occurrence: ZA)
  Receive Date: 20250825
  Receipt Date: 20251029
  Transmission Date: 20260118
  Serious: Yes (Hospitalization, Other)
  Sender: NOVARTIS
  Company Number: ZA-002147023-NVSC2025ZA131917

PATIENT
  Age: 28 Year
  Sex: Female

DRUGS (6)
  1. OFATUMUMAB [Suspect]
     Active Substance: OFATUMUMAB
     Indication: Relapsing-remitting multiple sclerosis
     Dosage: 20 MG, QW
     Route: 058
     Dates: start: 20250815
  2. OFATUMUMAB [Suspect]
     Active Substance: OFATUMUMAB
     Dosage: UNK, QW (WEEK 1)
     Route: 065
     Dates: start: 20250822
  3. OFATUMUMAB [Suspect]
     Active Substance: OFATUMUMAB
     Dosage: UNK, QW (WEEK 4)
     Route: 065
     Dates: start: 20250912
  4. OFATUMUMAB [Suspect]
     Active Substance: OFATUMUMAB
     Dosage: 20 MG, QMO
     Route: 058
     Dates: start: 20251010
  5. SOLU-MEDROL [Concomitant]
     Active Substance: METHYLPREDNISOLONE SODIUM SUCCINATE
     Indication: Optic neuritis
     Dosage: UNK
     Route: 065
     Dates: start: 202408
  6. SOLU-MEDROL [Concomitant]
     Active Substance: METHYLPREDNISOLONE SODIUM SUCCINATE
     Indication: Gait disturbance

REACTIONS (20)
  - Pain [Recovering/Resolving]
  - Feeling hot [Recovering/Resolving]
  - Confusional state [Recovering/Resolving]
  - Headache [Recovered/Resolved]
  - Fatigue [Recovered/Resolved]
  - Fatigue [Recovered/Resolved]
  - Injection site pain [Recovering/Resolving]
  - Immune system disorder [Not Recovered/Not Resolved]
  - Coordination abnormal [Unknown]
  - Hypoaesthesia [Unknown]
  - Headache [Unknown]
  - Pyrexia [Unknown]
  - Dizziness [Recovering/Resolving]
  - Tachycardia [Unknown]
  - Chills [Unknown]
  - Flushing [Unknown]
  - Fatigue [Unknown]
  - Nausea [Recovering/Resolving]
  - Emotional disorder [Unknown]
  - Myalgia [Unknown]

NARRATIVE: CASE EVENT DATE: 20250815
